FAERS Safety Report 15801385 (Version 2)
Quarter: 2019Q1

REPORT INFORMATION
  Report Type: Spontaneous
  Country: US (occurrence: US)
  Receive Date: 20190109
  Receipt Date: 20190110
  Transmission Date: 20190417
  Serious: Yes (Hospitalization, Other)
  Sender: FDA-Public Use
  Company Number: US-BRISTOL-MYERS SQUIBB COMPANY-BMS-2019-001292

PATIENT
  Sex: Male

DRUGS (2)
  1. METFORMIN HYDROCHLORIDE. [Suspect]
     Active Substance: METFORMIN HYDROCHLORIDE
     Indication: DIABETES MELLITUS
     Dosage: UNK
     Route: 065
  2. VALSARTAN. [Interacting]
     Active Substance: VALSARTAN
     Indication: ANGINA PECTORIS
     Dosage: 80 MG, QD
     Route: 048
     Dates: start: 20170320

REACTIONS (4)
  - Malaise [Unknown]
  - Heart rate decreased [Unknown]
  - Drug interaction [Unknown]
  - Loss of consciousness [Unknown]

NARRATIVE: CASE EVENT DATE: 20180403
